FAERS Safety Report 25429474 (Version 2)
Quarter: 2025Q3

REPORT INFORMATION
  Report Type: Spontaneous
  Country: EU (occurrence: EU)
  Receive Date: 20250612
  Receipt Date: 20250704
  Transmission Date: 20251021
  Serious: Yes (Other)
  Sender: CSL BEHRING
  Company Number: EU-BEH-2025209070

PATIENT
  Age: 44 Year
  Sex: Male

DRUGS (1)
  1. HUMAN IMMUNOGLOBULIN G [Suspect]
     Active Substance: HUMAN IMMUNOGLOBULIN G
     Indication: Acute polyneuropathy
     Route: 042

REACTIONS (6)
  - Splenic infarction [Unknown]
  - Off label use [Unknown]
  - Abdominal pain upper [Unknown]
  - Abdominal tenderness [Unknown]
  - Vomiting [Unknown]
  - Nausea [Unknown]
